FAERS Safety Report 7979909-8 (Version None)
Quarter: 2011Q4

REPORT INFORMATION
  Report Type: 
  Country: None (occurrence: None)
  Receive Date: 20111208
  Receipt Date: 20111130
  Transmission Date: 20120403
  Serious: Yes (Hospitalization)
  Sender: FDA-Public Use
  Company Number: 2011SP052929

PATIENT
  Age: 76 Year
  Sex: Female

DRUGS (15)
  1. LOXOPROFEN SODIUM [Concomitant]
  2. MIRTAZAPINE [Suspect]
     Indication: DEPRESSION
     Dosage: 15;7.5 MG, QD, PO
     Route: 048
     Dates: start: 20110722, end: 20110930
  3. MIRTAZAPINE [Suspect]
     Indication: DEPRESSION
     Dosage: 15;7.5 MG, QD, PO
     Route: 048
     Dates: start: 20110708, end: 20110721
  4. DEXTROMETHORPHAN HYDROBROMIDE [Concomitant]
  5. VALSARTAN [Concomitant]
  6. ETIZOLAM [Concomitant]
  7. SEFDOTPREM PIVOXIL [Concomitant]
  8. ZOLPIDEM [Concomitant]
  9. TRANEXAMIC ACID [Concomitant]
  10. RILMAZAFONE HYDROCHLORIDE [Concomitant]
  11. FUROSEMIDE [Concomitant]
  12. LEVOTHYROXINE SODIIUM [Concomitant]
  13. SENNOSIDE [Concomitant]
  14. PAROXETINE HYDROCHLORDIE [Concomitant]
  15. CLONAZEPAM [Concomitant]

REACTIONS (3)
  - DIZZINESS [None]
  - HEPATITIS [None]
  - ANTINUCLEAR ANTIBODY INCREASED [None]
